FAERS Safety Report 25726181 (Version 1)
Quarter: 2025Q3

REPORT INFORMATION
  Report Type: Spontaneous
  Country: EU (occurrence: EU)
  Receive Date: 20250826
  Receipt Date: 20250826
  Transmission Date: 20251020
  Serious: Yes (Hospitalization)
  Sender: MACLEODS
  Company Number: EU-MACLEODS PHARMA-MAC2025054843

PATIENT

DRUGS (3)
  1. RIVAROXABAN [Suspect]
     Active Substance: RIVAROXABAN
     Indication: Embolism venous
     Route: 065
  2. RIVAROXABAN [Suspect]
     Active Substance: RIVAROXABAN
     Indication: Atrial fibrillation
     Route: 065
  3. AMIODARONE [Suspect]
     Active Substance: AMIODARONE
     Indication: Product used for unknown indication
     Route: 065

REACTIONS (2)
  - Haemoptysis [Recovered/Resolved]
  - Lung infiltration [Recovered/Resolved]
